FAERS Safety Report 5600823-7 (Version None)
Quarter: 2008Q1

REPORT INFORMATION
  Report Type: 
  Country: None (occurrence: None)
  Receive Date: 20080123
  Receipt Date: 20080111
  Transmission Date: 20080703
  Serious: Yes (Hospitalization)
  Sender: FDA-Public Use
  Company Number: US-PFIZER INC-2008004385

PATIENT
  Sex: Male

DRUGS (1)
  1. DILANTIN [Suspect]
     Route: 048

REACTIONS (3)
  - FEELING JITTERY [None]
  - HEADACHE [None]
  - MIGRAINE [None]
